FAERS Safety Report 20530289 (Version 1)
Quarter: 2022Q1

REPORT INFORMATION
  Report Type: Spontaneous
  Country: SE (occurrence: SE)
  Receive Date: 20220301
  Receipt Date: 20220301
  Transmission Date: 20220423
  Serious: Yes (Other)
  Sender: FDA-Public Use
  Company Number: SE-CHEPLA-2022000996

PATIENT
  Age: 33 Year

DRUGS (1)
  1. CLONAZEPAM [Suspect]
     Active Substance: CLONAZEPAM
     Dosage: UNK(AS TOWARDS NIGHT . )
     Route: 065

REACTIONS (3)
  - Drug abuse [Unknown]
  - Apathy [Unknown]
  - Somnolence [Unknown]
